FAERS Safety Report 6429504-7 (Version None)
Quarter: 2009Q4

REPORT INFORMATION
  Report Type: 
  Country: None (occurrence: None)
  Receive Date: 20091105
  Receipt Date: 20090731
  Transmission Date: 20100525
  Serious: No
  Sender: FDA-Public Use
  Company Number: US-ABBOTT-09P-163-0589483-00

PATIENT
  Sex: Male
  Weight: 90.8 kg

DRUGS (2)
  1. KALETRA [Suspect]
     Indication: HIV INFECTION
     Dosage: 4 TABLETS IN 1 DAY
     Dates: start: 20070101
  2. TRUVADA [Concomitant]
     Indication: HIV INFECTION

REACTIONS (1)
  - TREATMENT NONCOMPLIANCE [None]
